FAERS Safety Report 10603249 (Version 5)
Quarter: 2015Q1

REPORT INFORMATION
  Report Type: Spontaneous
  Country: US (occurrence: US)
  Receive Date: 20141124
  Receipt Date: 20150311
  Transmission Date: 20150720
  Serious: Yes (Death, Hospitalization)
  Sender: FDA-Public Use
  Company Number: US-ACTELION-A-US2014-108505

PATIENT
  Age: 6 Month
  Sex: Female

DRUGS (4)
  1. TRACLEER [Suspect]
     Active Substance: BOSENTAN\BOSENTAN MONOHYDRATE
     Indication: PULMONARY ARTERIAL HYPERTENSION
     Dosage: 15.625 MG, BID
     Route: 048
     Dates: start: 201409
  2. LASIX [Concomitant]
     Active Substance: FUROSEMIDE
     Dosage: 5 MG, BID
  3. SILDENAFIL. [Concomitant]
     Active Substance: SILDENAFIL
     Dosage: 6 MG, Q6HRS
     Dates: start: 201406
  4. ASPIRIN. [Concomitant]
     Active Substance: ASPIRIN

REACTIONS (4)
  - Catheterisation cardiac [Unknown]
  - Tricuspid valve incompetence [None]
  - Pulmonary vein stenosis [Fatal]
  - Dilatation ventricular [None]
